FAERS Safety Report 7277848-1 (Version None)
Quarter: 2011Q1

REPORT INFORMATION
  Report Type: 
  Country: None (occurrence: None)
  Receive Date: 20110207
  Receipt Date: 20110202
  Transmission Date: 20110831
  Serious: Yes (Life-Threatening, Hospitalization)
  Sender: FDA-Public Use
  Company Number: FR-JNJFOC-20110201082

PATIENT
  Age: 44 Year
  Sex: Female

DRUGS (7)
  1. LEPTICUR [Suspect]
     Indication: PRODUCT USED FOR UNKNOWN INDICATION
     Route: 048
  2. MEPRONIZINE [Suspect]
     Indication: PRODUCT USED FOR UNKNOWN INDICATION
     Route: 048
  3. TEGRETOL [Suspect]
     Indication: BIPOLAR DISORDER
     Route: 048
  4. MOCLAMINE [Suspect]
     Indication: DEPRESSION
     Route: 048
  5. RISPERDAL [Suspect]
     Indication: DELUSIONAL DISORDER, UNSPECIFIED TYPE
     Route: 048
  6. NOZINAN [Suspect]
     Indication: PRODUCT USED FOR UNKNOWN INDICATION
     Route: 048
  7. TRANXENE [Suspect]
     Indication: PRODUCT USED FOR UNKNOWN INDICATION
     Route: 048

REACTIONS (9)
  - FALL [None]
  - JAUNDICE [None]
  - CELL DEATH [None]
  - ENCEPHALOPATHY [None]
  - HEPATITIS FULMINANT [None]
  - CHOLESTASIS [None]
  - SPLENOMEGALY [None]
  - ASTHENIA [None]
  - NEUROLOGICAL SYMPTOM [None]
